FAERS Safety Report 14248826 (Version 1)
Quarter: 2017Q4

REPORT INFORMATION
  Report Type: Spontaneous
  Country: US (occurrence: US)
  Receive Date: 20171204
  Receipt Date: 20171204
  Transmission Date: 20180321
  Serious: No
  Sender: FDA-Public Use
  Company Number: US-BIOGEN-2016BI00289381

PATIENT
  Age: 59 Year
  Sex: Female

DRUGS (4)
  1. TECFIDERA [Suspect]
     Active Substance: DIMETHYL FUMARATE
     Route: 065
     Dates: start: 20140324
  2. TECFIDERA [Suspect]
     Active Substance: DIMETHYL FUMARATE
     Route: 065
     Dates: start: 20130606, end: 20140324
  3. TECFIDERA [Suspect]
     Active Substance: DIMETHYL FUMARATE
     Dosage: MAINTENANCE DOSE
     Route: 048
  4. TECFIDERA [Suspect]
     Active Substance: DIMETHYL FUMARATE
     Indication: MULTIPLE SCLEROSIS
     Dosage: MAINTENANCE DOSE
     Route: 048
     Dates: start: 20151221

REACTIONS (14)
  - Multiple sclerosis relapse [Unknown]
  - Fall [Recovered/Resolved]
  - Limb discomfort [Recovered/Resolved]
  - Back pain [Recovered/Resolved]
  - Reading disorder [Unknown]
  - Hallucination [Unknown]
  - Hypoaesthesia [Not Recovered/Not Resolved]
  - Anaemia [Unknown]
  - Hypertonic bladder [Not Recovered/Not Resolved]
  - Loss of control of legs [Unknown]
  - Sleep apnoea syndrome [Unknown]
  - Glycosylated haemoglobin increased [Unknown]
  - Hepatic steatosis [Unknown]
  - Pain in extremity [Not Recovered/Not Resolved]

NARRATIVE: CASE EVENT DATE: 2016
